FAERS Safety Report 5307150-6 (Version None)
Quarter: 2007Q2

REPORT INFORMATION
  Report Type: 
  Country: None (occurrence: None)
  Receive Date: 20070420
  Receipt Date: 20070420
  Transmission Date: 20071010
  Serious: Yes (Other)
  Sender: FDA-Public Use
  Company Number: None

PATIENT
  Age: 49 Year
  Sex: Female
  Weight: 70.3075 kg

DRUGS (3)
  1. LEVAQUIN [Suspect]
     Indication: BRONCHITIS
     Dosage: 500 MG. 1 X DAY PO
     Route: 048
     Dates: start: 20070219, end: 20070228
  2. LEVAQUIN [Suspect]
     Indication: EAR INFECTION
     Dosage: 500 MG. 1 X DAY PO
     Route: 048
     Dates: start: 20070219, end: 20070228
  3. LEVAQUIN [Suspect]
     Indication: SINUSITIS
     Dosage: 500 MG. 1 X DAY PO
     Route: 048
     Dates: start: 20070219, end: 20070228

REACTIONS (8)
  - ABASIA [None]
  - AMNESIA [None]
  - ARTHRALGIA [None]
  - CONFUSIONAL STATE [None]
  - DIZZINESS [None]
  - FATIGUE [None]
  - MYALGIA [None]
  - PAIN IN EXTREMITY [None]
